FAERS Safety Report 5144843-8 (Version None)
Quarter: 2006Q4

REPORT INFORMATION
  Report Type: 
  Country: None (occurrence: None)
  Receive Date: 20061107
  Receipt Date: 20061102
  Transmission Date: 20070319
  Serious: Yes (Other)
  Sender: FDA-Public Use
  Company Number: DE-BAYER-200611453BVD

PATIENT
  Age: 67 Year
  Sex: Male
  Weight: 60 kg

DRUGS (5)
  1. NEXAVAR [Suspect]
     Indication: RENAL CELL CARCINOMA STAGE UNSPECIFIED
     Route: 048
     Dates: start: 20060725
  2. DIOVAN [Concomitant]
     Route: 048
  3. FUROSEMIDE [Concomitant]
     Route: 048
  4. METAMIZOLE [Concomitant]
     Route: 048
  5. CONCOR [Concomitant]
     Route: 048

REACTIONS (1)
  - CONVULSION [None]
